FAERS Safety Report 7772649-X (Version None)
Quarter: 2011Q3

REPORT INFORMATION
  Report Type: 
  Country: None (occurrence: None)
  Receive Date: 20110922
  Receipt Date: 20110713
  Transmission Date: 20111222
  Serious: No
  Sender: FDA-Public Use
  Company Number: US-ASTRAZENECA-2011SE41816

PATIENT
  Age: 24 Year
  Sex: Male
  Weight: 77.1 kg

DRUGS (5)
  1. AMBIEN [Concomitant]
     Indication: SLEEP DISORDER
  2. SEROQUEL [Suspect]
     Route: 048
     Dates: start: 20090101, end: 20110101
  3. PROZAC [Concomitant]
     Indication: ANXIETY
  4. XANAX [Concomitant]
     Indication: PANIC ATTACK
  5. SEROQUEL [Suspect]
     Indication: BIPOLAR DISORDER
     Route: 048

REACTIONS (5)
  - DEPRESSED MOOD [None]
  - SOMNOLENCE [None]
  - DRUG DOSE OMISSION [None]
  - WEIGHT INCREASED [None]
  - INSOMNIA [None]
